FAERS Safety Report 8529647-8 (Version None)
Quarter: 2012Q3

REPORT INFORMATION
  Report Type: 
  Country: None (occurrence: None)
  Receive Date: 20120710
  Receipt Date: 20120628
  Transmission Date: 20120928
  Serious: Yes (Other)
  Sender: FDA-Public Use
  Company Number: AUR-APL-2012-02921

PATIENT
  Age: 80 Year
  Sex: Female

DRUGS (7)
  1. CLOPIDOGREL [Concomitant]
  2. METFFORMIN HYDROCHLORIDE [Concomitant]
  3. FYBOGEL (PLANTAGO OVATA) [Concomitant]
  4. JANUVIA [Concomitant]
  5. LISINOPRIL [Concomitant]
  6. LANSOPRAZOLE [Concomitant]
  7. SIMVASTATIN [Suspect]
     Dosage: [10005747 - BLOOD PRESSURE HIGH] [V.15.0]

REACTIONS (2)
  - PAIN IN EXTREMITY [None]
  - ABASIA [None]
